FAERS Safety Report 13680735 (Version 1)
Quarter: 2017Q2

REPORT INFORMATION
  Report Type: Spontaneous
  Country: US (occurrence: US)
  Receive Date: 20170623
  Receipt Date: 20170623
  Transmission Date: 20170830
  Serious: No
  Sender: FDA-Public Use
  Company Number: US-009507513-1706USA002682

PATIENT
  Age: 83 Year
  Sex: Male

DRUGS (8)
  1. ATORVASTATIN [Concomitant]
     Active Substance: ATORVASTATIN
  2. CARVEDILOL. [Concomitant]
     Active Substance: CARVEDILOL
  3. ASPIRIN. [Concomitant]
     Active Substance: ASPIRIN
     Route: 048
  4. BLOOD THINNER (UNSPECIFIED) [Concomitant]
     Active Substance: UNSPECIFIED INGREDIENT
  5. TEMAZEPAM. [Concomitant]
     Active Substance: TEMAZEPAM
  6. BELSOMRA [Suspect]
     Active Substance: SUVOREXANT
     Indication: INSOMNIA
     Dosage: 10 MG (ONE TABLET) NIGHTLY
     Route: 048
     Dates: start: 20170602
  7. AMLODIPINE [Concomitant]
     Active Substance: AMLODIPINE BESYLATE
  8. COZAAR [Concomitant]
     Active Substance: LOSARTAN POTASSIUM
     Route: 048

REACTIONS (2)
  - Drug effect incomplete [Unknown]
  - Poor quality sleep [Unknown]

NARRATIVE: CASE EVENT DATE: 20170602
